FAERS Safety Report 19696698 (Version 1)
Quarter: 2021Q3

REPORT INFORMATION
  Report Type: Spontaneous
  Country: US (occurrence: US)
  Receive Date: 20210812
  Receipt Date: 20210812
  Transmission Date: 20211014
  Serious: Yes (Death)
  Sender: FDA-Public Use
  Company Number: None

PATIENT
  Age: 59 Year
  Sex: Male

DRUGS (18)
  1. UPTRAVI [Concomitant]
     Active Substance: SELEXIPAG
  2. TADALAFIL. [Concomitant]
     Active Substance: TADALAFIL
  3. ALFUZOSIN [Concomitant]
     Active Substance: ALFUZOSIN
  4. HUMULIN N [Concomitant]
     Active Substance: INSULIN HUMAN
  5. HUMULIN R [Concomitant]
     Active Substance: INSULIN HUMAN
  6. GABAPENTIN. [Concomitant]
     Active Substance: GABAPENTIN
  7. FERROUS SULFATE. [Concomitant]
     Active Substance: FERROUS SULFATE
  8. VENTOLIN HFA [Concomitant]
     Active Substance: ALBUTEROL SULFATE
  9. WIXELA INHUB [Concomitant]
     Active Substance: FLUTICASONE PROPIONATE\SALMETEROL XINAFOATE
  10. FOLIC ACID. [Concomitant]
     Active Substance: FOLIC ACID
  11. TADALAFIL 20MG TAB 60/BO (DR. REDDY): [Suspect]
     Active Substance: TADALAFIL
     Indication: PULMONARY ARTERIAL HYPERTENSION
     Route: 048
     Dates: start: 20200108, end: 202107
  12. DIGOXIN. [Concomitant]
     Active Substance: DIGOXIN
  13. ZOFRAN [Concomitant]
     Active Substance: ONDANSETRON HYDROCHLORIDE
  14. BUMETANIDE. [Concomitant]
     Active Substance: BUMETANIDE
  15. ATORVASTATIN [Concomitant]
     Active Substance: ATORVASTATIN
  16. SPIRONOLACTONE. [Concomitant]
     Active Substance: SPIRONOLACTONE
  17. MVI [Concomitant]
     Active Substance: VITAMINS
  18. VITAMIN B?1 [Concomitant]
     Active Substance: THIAMINE HYDROCHLORIDE

REACTIONS (5)
  - Aortic annulus rupture [None]
  - Aortic stenosis [None]
  - Pericardial effusion [None]
  - Cardiac arrest [None]
  - Anaemia [None]

NARRATIVE: CASE EVENT DATE: 20210709
